FAERS Safety Report 13716114 (Version 1)
Quarter: 2017Q3

REPORT INFORMATION
  Report Type: Spontaneous
  Country: IT (occurrence: IT)
  Receive Date: 20170705
  Receipt Date: 20170705
  Transmission Date: 20171127
  Serious: Yes (Hospitalization)
  Sender: FDA-Public Use
  Company Number: IT-ASTRAZENECA-2017SE67057

PATIENT
  Age: 17405 Day
  Sex: Female

DRUGS (5)
  1. ZOLOFT [Concomitant]
     Active Substance: SERTRALINE HYDROCHLORIDE
  2. VALIUM [Concomitant]
     Active Substance: DIAZEPAM
     Dosage: 5 MG/ML
     Route: 048
  3. HALDOL [Concomitant]
     Active Substance: HALOPERIDOL
  4. INDERAL [Concomitant]
     Active Substance: PROPRANOLOL HYDROCHLORIDE
  5. SEROQUEL [Suspect]
     Active Substance: QUETIAPINE FUMARATE
     Indication: INTENTIONAL SELF-INJURY
     Dosage: 3 DOSAGE UNIT TOTAL
     Route: 048

REACTIONS (3)
  - Intentional self-injury [Recovered/Resolved]
  - Intentional overdose [Recovered/Resolved]
  - Drug use disorder [Recovered/Resolved]

NARRATIVE: CASE EVENT DATE: 20170619
